FAERS Safety Report 24982791 (Version 2)
Quarter: 2025Q2

REPORT INFORMATION
  Report Type: Spontaneous
  Country: JP (occurrence: JP)
  Receive Date: 20250218
  Receipt Date: 20250418
  Transmission Date: 20250717
  Serious: Yes (Hospitalization, Other)
  Sender: ELI LILLY AND COMPANY
  Company Number: JP-ELI_LILLY_AND_COMPANY-JP202502005773

PATIENT
  Age: 60 Year
  Sex: Female
  Weight: 53 kg

DRUGS (8)
  1. EMGALITY [Suspect]
     Active Substance: GALCANEZUMAB-GNLM
     Indication: Migraine
     Route: 058
     Dates: start: 20241115
  2. CRYPTOMERIA JAPONICA POLLEN [Concomitant]
     Active Substance: CRYPTOMERIA JAPONICA POLLEN
     Indication: Seasonal allergy
     Route: 060
     Dates: start: 2024
  3. FLUTICASONE FUROATE\VILANTEROL TRIFENATATE [Concomitant]
     Active Substance: FLUTICASONE FUROATE\VILANTEROL TRIFENATATE
     Dosage: UNK, DAILY
     Route: 055
  4. MONTELUKAST NICHIIKO [Concomitant]
     Dosage: 10 MG, DAILY
     Route: 048
  5. VALPROATE SODIUM [Concomitant]
     Active Substance: VALPROATE SODIUM
     Indication: Migraine
     Dosage: 400 MG, DAILY
     Route: 048
  6. RIVOTRIL [Concomitant]
     Active Substance: CLONAZEPAM
     Indication: Migraine
     Dosage: 0.25 MG, DAILY
     Route: 048
  7. NARATRIPTAN HYDROCHLORIDE [Concomitant]
     Active Substance: NARATRIPTAN HYDROCHLORIDE
     Indication: Migraine
     Route: 048
  8. HYALURONATE SODIUM [Concomitant]
     Active Substance: HYALURONATE SODIUM

REACTIONS (3)
  - Haemoptysis [Recovered/Resolved]
  - Pneumonia aspiration [Unknown]
  - Cough [Unknown]

NARRATIVE: CASE EVENT DATE: 20241130
